FAERS Safety Report 8582808-4 (Version None)
Quarter: 2012Q3

REPORT INFORMATION
  Report Type: 
  Country: None (occurrence: None)
  Receive Date: 20120809
  Receipt Date: 20120705
  Transmission Date: 20120928
  Serious: No
  Sender: FDA-Public Use
  Company Number: US-ASTRAZENECA-2011SE61315

PATIENT
  Age: 46 Year
  Sex: Female

DRUGS (3)
  1. SYMBICORT [Suspect]
     Route: 055
  2. PULMICORT [Suspect]
     Route: 055
  3. SEROQUEL [Suspect]
     Route: 048

REACTIONS (12)
  - CHRONIC OBSTRUCTIVE PULMONARY DISEASE [None]
  - ASTHMA [None]
  - MUSCULOSKELETAL STIFFNESS [None]
  - NASOPHARYNGITIS [None]
  - MUSCLE SPASMS [None]
  - ANXIETY [None]
  - ADVERSE DRUG REACTION [None]
  - INSOMNIA [None]
  - DRUG HYPERSENSITIVITY [None]
  - RHEUMATOID ARTHRITIS [None]
  - MUSCLE TWITCHING [None]
  - FIBROMYALGIA [None]
